FAERS Safety Report 10580954 (Version 1)
Quarter: 2014Q4

REPORT INFORMATION
  Report Type: Spontaneous
  Country: FR (occurrence: None)
  Receive Date: 20141110
  Receipt Date: 20141110
  Transmission Date: 20150529
  Serious: Yes (Hospitalization)
  Sender: FDA-Public Use
  Company Number: 2014299025

PATIENT
  Age: 61 Year
  Sex: Male

DRUGS (13)
  1. VANCOMYCINE [Suspect]
     Active Substance: VANCOMYCIN
     Indication: ANTIBIOTIC PROPHYLAXIS
     Route: 042
     Dates: start: 20140808, end: 20140808
  2. METFORMIN [Concomitant]
     Active Substance: METFORMIN HYDROCHLORIDE
  3. NEFOPAM HYDROCHLORIDE [Suspect]
     Active Substance: NEFOPAM HYDROCHLORIDE
     Route: 042
     Dates: start: 20140808, end: 20140809
  4. XATRAL - SLOW RELEASE [Suspect]
     Active Substance: ALFUZOSIN
     Route: 048
     Dates: start: 20140809, end: 20140811
  5. MORPHINE [Suspect]
     Active Substance: MORPHINE
     Dates: start: 20140808, end: 20140808
  6. DIAMICRON (GLICLAZIDE) [Concomitant]
  7. APROVEL [Suspect]
     Active Substance: IRBESARTAN
     Route: 048
  8. SERESTA (OXAZEPAM) [Concomitant]
     Active Substance: OXAZEPAM
  9. VICTOZA [Concomitant]
     Active Substance: LIRAGLUTIDE
  10. GENTAMICINE [Suspect]
     Active Substance: GENTAMICIN
     Indication: ANTIBIOTIC PROPHYLAXIS
     Route: 042
     Dates: start: 20140808, end: 20140808
  11. PROFENID (KETOPROFEN) [Suspect]
     Active Substance: KETOPROFEN
     Route: 042
     Dates: start: 20140808, end: 20140809
  12. FRAGMINE (DALTEPARIN SODIUM) SOLUTION FOR INJECTION [Suspect]
     Active Substance: DALTEPARIN SODIUM
     Dates: start: 20140808, end: 20140810
  13. AMOXICILLIN. [Concomitant]
     Active Substance: AMOXICILLIN

REACTIONS (1)
  - Acute kidney injury [None]

NARRATIVE: CASE EVENT DATE: 20140809
